FAERS Safety Report 7397888-1 (Version None)
Quarter: 2011Q2

REPORT INFORMATION
  Report Type: 
  Country: None (occurrence: None)
  Receive Date: 20110406
  Receipt Date: 20110328
  Transmission Date: 20111010
  Serious: Yes (Hospitalization)
  Sender: FDA-Public Use
  Company Number: US-ASTRAZENECA-2011SE17531

PATIENT
  Age: 75 Year
  Sex: Female
  Weight: 81.6 kg

DRUGS (4)
  1. LIPITOR [Concomitant]
  2. LISINOPRIL [Concomitant]
  3. CRESTOR [Suspect]
     Indication: BLOOD CHOLESTEROL INCREASED
     Route: 048
     Dates: start: 20100901
  4. BYSTOLIC [Concomitant]

REACTIONS (3)
  - DRUG INEFFECTIVE [None]
  - WEIGHT INCREASED [None]
  - HEART RATE INCREASED [None]
